FAERS Safety Report 16934282 (Version 3)
Quarter: 2019Q4

REPORT INFORMATION
  Report Type: Spontaneous
  Country: US (occurrence: US)
  Receive Date: 20191018
  Receipt Date: 20191128
  Transmission Date: 20200122
  Serious: Yes (Life-Threatening)
  Sender: FDA-Public Use
  Company Number: US-SHIRE-US201933829

PATIENT
  Sex: Female

DRUGS (6)
  1. NATPARA (PARATHYROID HORMONE) [Suspect]
     Active Substance: PARATHYROID HORMONE
     Dosage: 50 MICROGRAM, 1X/DAY:QD
     Route: 065
     Dates: start: 20190914
  2. CALCIUM CARBONATE. [Concomitant]
     Active Substance: CALCIUM CARBONATE
     Indication: HYPOCALCAEMIA
  3. MAGNESIUM [Concomitant]
     Active Substance: MAGNESIUM
     Indication: HYPOCALCAEMIA
  4. CALCITRIOL. [Concomitant]
     Active Substance: CALCITRIOL
     Indication: HYPOCALCAEMIA
  5. NATPARA (PARATHYROID HORMONE) [Suspect]
     Active Substance: PARATHYROID HORMONE
     Indication: POST PROCEDURAL HYPOPARATHYROIDISM
     Dosage: 50 MICROGRAM, 1X/DAY:QD
     Route: 065
     Dates: start: 201904
  6. LEVOTHYROXINE. [Concomitant]
     Active Substance: LEVOTHYROXINE
     Indication: THYROID CANCER

REACTIONS (2)
  - Hypoparathyroidism [Unknown]
  - Recalled product [Unknown]
